FAERS Safety Report 25067525 (Version 1)
Quarter: 2025Q1

REPORT INFORMATION
  Report Type: Spontaneous
  Country: US (occurrence: None)
  Receive Date: 20250311
  Receipt Date: 20250311
  Transmission Date: 20250409
  Serious: Yes (Death)
  Sender: FDA-CTU
  Company Number: None

PATIENT
  Age: 81 Year
  Sex: Female

DRUGS (5)
  1. KALETRA [Suspect]
     Active Substance: LOPINAVIR\RITONAVIR
     Dates: start: 20220927, end: 20250214
  2. ELIQUIS [Suspect]
     Active Substance: APIXABAN
     Dates: start: 20020711, end: 20250214
  3. DILTIAZEM [Suspect]
     Active Substance: DILTIAZEM
     Dates: start: 20210701, end: 20250214
  4. LEVOTHYROXINE [Suspect]
     Active Substance: LEVOTHYROXINE
     Dates: start: 20161030, end: 20250214
  5. VITAMINS [Suspect]
     Active Substance: VITAMINS
     Dates: start: 20160101, end: 20250214

REACTIONS (1)
  - Influenza [None]

NARRATIVE: CASE EVENT DATE: 20250214
